FAERS Safety Report 8840650 (Version 1)
Quarter: 2012Q4

REPORT INFORMATION
  Report Type: 
  Country: US (occurrence: US)
  Receive Date: 20121015
  Receipt Date: 20121015
  Transmission Date: 20130627
  Serious: Yes (Death, Hospitalization)
  Sender: FDA-Public Use
  Company Number: US-PFIZER INC-2012251333

PATIENT
  Age: 69 Year
  Sex: Male
  Weight: 50.79 kg

DRUGS (6)
  1. ZYVOX [Suspect]
     Indication: INFECTION
     Dosage: 600 mg, 2x/day
     Route: 048
     Dates: start: 2012
  2. MEGESTROL [Concomitant]
     Dosage: UNK
  3. NYSTATIN [Concomitant]
     Dosage: UNK
  4. FAMOTIDINE [Concomitant]
     Dosage: UNK
  5. WARFARIN [Concomitant]
     Dosage: UNK
  6. MIRTAZAPINE [Concomitant]
     Dosage: UNK

REACTIONS (1)
  - Sepsis [Fatal]
